FAERS Safety Report 8378662-6 (Version None)
Quarter: 2012Q2

REPORT INFORMATION
  Report Type: 
  Country: None (occurrence: None)
  Receive Date: 20120522
  Receipt Date: 20120518
  Transmission Date: 20120825
  Serious: Yes (Other)
  Sender: FDA-Public Use
  Company Number: PHHY2012GB042670

PATIENT
  Age: 47 Year
  Sex: Male
  Weight: 88 kg

DRUGS (1)
  1. RAMIPRIL [Suspect]

REACTIONS (2)
  - CONSTIPATION [None]
  - HAEMORRHOIDS [None]
